FAERS Safety Report 21439780 (Version 1)
Quarter: 2022Q4

REPORT INFORMATION
  Report Type: Spontaneous
  Country: US (occurrence: US)
  Receive Date: 20221011
  Receipt Date: 20221011
  Transmission Date: 20230113
  Serious: Yes (Hospitalization, Other)
  Sender: FDA-Public Use
  Company Number: US-JUBILANT CADISTA PHARMACEUTICALS-2022JUB00329

PATIENT
  Age: 16 Year
  Sex: Male

DRUGS (2)
  1. OLANZAPINE [Suspect]
     Active Substance: OLANZAPINE
     Indication: Catatonia
     Dosage: UP TO 2.5 MG TWICE DAILY
  2. LORAZEPAM [Concomitant]
     Active Substance: LORAZEPAM
     Indication: Catatonia
     Dosage: 2 MG, 3X/DAY (EVERY 8 HOUR)
     Route: 042

REACTIONS (3)
  - Catatonia [Recovered/Resolved]
  - Condition aggravated [Recovered/Resolved]
  - Urinary incontinence [Unknown]
